FAERS Safety Report 7384207 (Version 20)
Quarter: 2016Q1

REPORT INFORMATION
  Report Type: Spontaneous
  Country: CA (occurrence: CA)
  Receive Date: 20100511
  Receipt Date: 20160329
  Transmission Date: 20160526
  Serious: Yes (Other)
  Sender: FDA-Public Use
  Company Number: CA-ROCHE-GNE301475

PATIENT
  Age: 44 Year
  Sex: Male
  Weight: 77 kg

DRUGS (24)
  1. XOLAIR [Suspect]
     Active Substance: OMALIZUMAB
     Route: 058
     Dates: start: 20150408
  2. XOLAIR [Suspect]
     Active Substance: OMALIZUMAB
     Route: 058
     Dates: start: 20150910
  3. ZADITOR [Concomitant]
     Active Substance: KETOTIFEN FUMARATE
  4. AVAMYS [Concomitant]
     Active Substance: FLUTICASONE FUROATE
  5. XOLAIR [Suspect]
     Active Substance: OMALIZUMAB
     Route: 058
     Dates: start: 20151105
  6. XOLAIR [Suspect]
     Active Substance: OMALIZUMAB
     Route: 058
     Dates: start: 20160224
  7. NASONEX [Concomitant]
     Active Substance: MOMETASONE FUROATE
  8. ADVAIR HFA [Concomitant]
     Active Substance: FLUTICASONE PROPIONATE\SALMETEROL XINAFOATE
     Route: 065
  9. XOLAIR [Suspect]
     Active Substance: OMALIZUMAB
     Indication: ASTHMA
     Route: 058
     Dates: start: 20050708
  10. TWINJECT AUTO-INJECTOR [Concomitant]
  11. OMNARIS [Concomitant]
     Active Substance: CICLESONIDE
  12. XOLAIR [Suspect]
     Active Substance: OMALIZUMAB
     Indication: CONJUNCTIVITIS
     Route: 058
     Dates: start: 20050718
  13. XOLAIR [Suspect]
     Active Substance: OMALIZUMAB
     Route: 058
     Dates: start: 20150423
  14. XOLAIR [Suspect]
     Active Substance: OMALIZUMAB
     Route: 058
     Dates: start: 20150813
  15. XOLAIR [Suspect]
     Active Substance: OMALIZUMAB
     Route: 058
     Dates: start: 20160323
  16. RHINOCORT [Concomitant]
     Active Substance: BUDESONIDE
  17. XOLAIR [Suspect]
     Active Substance: OMALIZUMAB
     Route: 058
     Dates: start: 20131217
  18. SYMBICORT [Concomitant]
     Active Substance: BUDESONIDE\FORMOTEROL FUMARATE DIHYDRATE
  19. SINGULAIR [Concomitant]
     Active Substance: MONTELUKAST SODIUM
  20. EPIPEN [Concomitant]
     Active Substance: EPINEPHRINE
  21. XOLAIR [Suspect]
     Active Substance: OMALIZUMAB
     Route: 058
     Dates: start: 20091130
  22. CLAVULIN [Concomitant]
     Active Substance: AMOXICILLIN\CLAVULANIC ACID
  23. FLONASE [Concomitant]
     Active Substance: FLUTICASONE PROPIONATE
  24. PATANOL [Concomitant]
     Active Substance: OLOPATADINE HYDROCHLORIDE

REACTIONS (21)
  - Productive cough [Unknown]
  - Lymphadenopathy [Unknown]
  - Peripheral coldness [Unknown]
  - Obstructive airways disorder [Unknown]
  - Asthma [Unknown]
  - Lacrimation increased [Unknown]
  - Wheezing [Recovering/Resolving]
  - Nasopharyngitis [Recovering/Resolving]
  - Breath sounds abnormal [Unknown]
  - Viral infection [Unknown]
  - Heart rate increased [Unknown]
  - Eye pruritus [Unknown]
  - Bronchitis [Recovered/Resolved]
  - Cough [Unknown]
  - Prolonged expiration [Unknown]
  - Product use issue [Unknown]
  - Fatigue [Unknown]
  - Sinus headache [Unknown]
  - Weight increased [Unknown]
  - Sneezing [Unknown]
  - Hypertension [Not Recovered/Not Resolved]

NARRATIVE: CASE EVENT DATE: 200710
